FAERS Safety Report 23364062 (Version 4)
Quarter: 2024Q1

REPORT INFORMATION
  Report Type: Spontaneous
  Country: US (occurrence: US)
  Receive Date: 20240104
  Receipt Date: 20240328
  Transmission Date: 20240410
  Serious: Yes (Other)
  Sender: FDA-Public Use
  Company Number: US-UNITED THERAPEUTICS-UNT-2023-037569

PATIENT
  Age: 39 Year
  Sex: Female
  Weight: 73.02 kg

DRUGS (5)
  1. REMODULIN [Suspect]
     Active Substance: TREPROSTINIL
     Indication: Product used for unknown indication
     Dosage: UNK, CONTINUING
     Route: 058
  2. AMBRISENTAN [Suspect]
     Active Substance: AMBRISENTAN
     Indication: Pulmonary arterial hypertension
     Dosage: 10 MG, QD
     Route: 065
     Dates: start: 20230907
  3. AMBRISENTAN [Suspect]
     Active Substance: AMBRISENTAN
     Dosage: UNK
     Route: 065
  4. ELIQUIS [Concomitant]
     Active Substance: APIXABAN
     Indication: Product used for unknown indication
     Route: 065
  5. ADEMPAS [Concomitant]
     Active Substance: RIOCIGUAT
     Indication: Product used for unknown indication
     Route: 065

REACTIONS (10)
  - Syncope [Unknown]
  - Petechiae [Not Recovered/Not Resolved]
  - Fall [Unknown]
  - Infusion site irritation [Unknown]
  - Dizziness postural [Unknown]
  - Blood pressure decreased [Unknown]
  - Iron deficiency anaemia [Not Recovered/Not Resolved]
  - Rash [Unknown]
  - Weight increased [Unknown]
  - Epistaxis [Unknown]
